FAERS Safety Report 23959686 (Version 2)
Quarter: 2024Q3

REPORT INFORMATION
  Report Type: Spontaneous
  Country: IT (occurrence: IT)
  Receive Date: 20240611
  Receipt Date: 20240701
  Transmission Date: 20241017
  Serious: Yes (Other)
  Sender: ESPERION THERAPEUTICS
  Company Number: None

PATIENT
  Age: 65 Year
  Sex: Male
  Weight: 112 kg

DRUGS (9)
  1. BEMPEDOIC ACID\EZETIMIBE [Suspect]
     Active Substance: BEMPEDOIC ACID\EZETIMIBE
     Indication: Hypercholesterolaemia
     Dosage: 1 DF, QD (180/10 MG 1CP PER DAY)
     Route: 048
     Dates: start: 20240403, end: 20240510
  2. ENALAPRIL MALEATE [Concomitant]
     Active Substance: ENALAPRIL MALEATE
     Indication: Hypertension
     Dosage: 20 MG, QD (20 MG 1CP PER DAY)
     Route: 048
     Dates: start: 2018
  3. OMEGA-3-ACID ETHYL ESTERS [Concomitant]
     Active Substance: OMEGA-3-ACID ETHYL ESTERS
     Indication: Dyslipidaemia
     Dosage: 1000 MG, QD (1000 MG 1CP DAILY)
     Route: 048
     Dates: start: 2023
  4. CHOLECALCIFEROL [Concomitant]
     Active Substance: CHOLECALCIFEROL
     Indication: Hypovitaminosis
     Dosage: 20 GTT, ONCE EVERY 1 WK (10,000 IU 20 GTT WEEKLY)
     Route: 048
     Dates: start: 2023
  5. ASPIRIN [Concomitant]
     Active Substance: ASPIRIN
     Indication: Thrombosis prophylaxis
     Dosage: 100 MG, QD (100 MG 1CP PER DAY)
     Route: 048
     Dates: start: 2019
  6. FENOFIBRATE [Concomitant]
     Active Substance: FENOFIBRATE
     Indication: Dyslipidaemia
     Dosage: 145 MG, QD (1CP DAILY)
     Route: 048
     Dates: start: 2023
  7. DELSTRIGO [Concomitant]
     Active Substance: DORAVIRINE\LAMIVUDINE\TENOFOVIR DISOPROXIL FUMARATE
     Indication: HIV test positive
     Dosage: 1 DF, QD (100/300/245 MG 1CP DAILY)
     Route: 048
     Dates: start: 2018
  8. TAMSULOSIN [Concomitant]
     Active Substance: TAMSULOSIN
     Indication: Benign prostatic hyperplasia
     Dosage: 0.4 MG, QD (1CP PER DAY)
     Route: 048
     Dates: start: 2023
  9. SERPEN [Concomitant]
     Indication: Benign prostatic hyperplasia
     Dosage: 320 MG, QD (1CP PER DAY)
     Route: 065
     Dates: start: 2023

REACTIONS (2)
  - Hepatotoxicity [Recovering/Resolving]
  - Rhabdomyolysis [Recovering/Resolving]

NARRATIVE: CASE EVENT DATE: 20240506
